FAERS Safety Report 10166362 (Version 1)
Quarter: 2014Q2

REPORT INFORMATION
  Report Type: Spontaneous
  Country: US (occurrence: US)
  Receive Date: 20140512
  Receipt Date: 20140512
  Transmission Date: 20141212
  Serious: No
  Sender: FDA-Public Use
  Company Number: US-B.I. PHARMACEUTICALS,INC./RIDGEFIELD-2014-BI-19650BP

PATIENT
  Sex: Female
  Weight: 90 kg

DRUGS (5)
  1. COMBIVENT [Suspect]
     Indication: LUNG NEOPLASM MALIGNANT
     Dosage: STRENGTH: 18 MCG / 103 MCG; DAILY DOSE: 288MCG/ 824 MCG
     Route: 055
     Dates: start: 2007, end: 201404
  2. ZOLOFT [Concomitant]
     Indication: DEPRESSION
     Route: 048
  3. WELLBUTRIN [Concomitant]
     Indication: DEPRESSION
     Route: 048
  4. FISH OIL [Concomitant]
     Route: 048
  5. GLUCOSIMINE [Concomitant]
     Route: 048

REACTIONS (4)
  - Dyspnoea [Not Recovered/Not Resolved]
  - Tendonitis [Recovered/Resolved]
  - Cough [Not Recovered/Not Resolved]
  - Off label use [Recovered/Resolved]
